FAERS Safety Report 6858818-1 (Version None)
Quarter: 2010Q3

REPORT INFORMATION
  Report Type: 
  Country: None (occurrence: None)
  Receive Date: 20100719
  Receipt Date: 20080219
  Transmission Date: 20110219
  Serious: No
  Sender: FDA-Public Use
  Company Number: US-PFIZER INC-2008016045

PATIENT
  Sex: Female
  Weight: 86.818 kg

DRUGS (3)
  1. CHANTIX [Suspect]
     Indication: SMOKING CESSATION THERAPY
     Dates: start: 20080211, end: 20080215
  2. LIPITOR [Concomitant]
  3. LISINOPRIL [Concomitant]

REACTIONS (1)
  - INSOMNIA [None]
